FAERS Safety Report 6479874-9 (Version None)
Quarter: 2009Q4

REPORT INFORMATION
  Report Type: 
  Country: None (occurrence: None)
  Receive Date: 20091208
  Receipt Date: 20091103
  Transmission Date: 20100525
  Serious: Yes (Other)
  Sender: FDA-Public Use
  Company Number: GB-SANOFI-AVENTIS-200714079EU

PATIENT
  Age: 57 Year
  Sex: Male
  Weight: 70 kg

DRUGS (4)
  1. DOLASETRON MESYLATE [Suspect]
     Indication: ANTIEMETIC SUPPORTIVE CARE
     Route: 042
     Dates: start: 20070806, end: 20070806
  2. AMITRIPTYLINE [Concomitant]
     Route: 048
     Dates: start: 20060101
  3. DICLOFENAC [Concomitant]
     Route: 048
     Dates: start: 20060101
  4. SOLPADOL [Concomitant]
     Dosage: DOSE AS USED: UNK
     Route: 048
     Dates: start: 20060101

REACTIONS (6)
  - ARRHYTHMIA [None]
  - CHEST PAIN [None]
  - DIZZINESS [None]
  - HEADACHE [None]
  - HYPERTENSION [None]
  - MYOCARDIAL INFARCTION [None]
